FAERS Safety Report 10761913 (Version 1)
Quarter: 2015Q1

REPORT INFORMATION
  Report Type: Report from Study
  Country: CA (occurrence: CA)
  Receive Date: 20150204
  Receipt Date: 20150204
  Transmission Date: 20150721
  Serious: Yes (Hospitalization)
  Sender: FDA-Public Use
  Company Number: CA-INCYTE CORPORATION-2015IN000362

PATIENT
  Age: 67 Year
  Sex: Male
  Weight: 85.1 kg

DRUGS (3)
  1. INC424 [Suspect]
     Active Substance: RUXOLITINIB
     Dosage: 30 MG, BID
     Route: 048
     Dates: start: 20150121
  2. INC424 [Suspect]
     Active Substance: RUXOLITINIB
     Indication: CHRONIC LYMPHOCYTIC LEUKAEMIA
     Dosage: 20 MG, BID
     Route: 048
     Dates: start: 20140808, end: 20141001
  3. INC424 [Suspect]
     Active Substance: RUXOLITINIB
     Dosage: 25 MG, BID
     Route: 048
     Dates: start: 20141002, end: 20141222

REACTIONS (1)
  - Blastomycosis [Not Recovered/Not Resolved]

NARRATIVE: CASE EVENT DATE: 20141217
